FAERS Safety Report 18176739 (Version 1)
Quarter: 2020Q3

REPORT INFORMATION
  Report Type: Spontaneous
  Country: GB (occurrence: GB)
  Receive Date: 20200820
  Receipt Date: 20200820
  Transmission Date: 20201103
  Serious: Yes (Other)
  Sender: FDA-Public Use
  Company Number: GB-MYLANLABS-2020M1071777

PATIENT
  Sex: Female

DRUGS (2)
  1. ABACAVIR SULFATE/LAMIVUDINE [Suspect]
     Active Substance: ABACAVIR SULFATE\LAMIVUDINE
     Indication: PRODUCT USED FOR UNKNOWN INDICATION
     Dosage: STRENGTH 600/300 OD
  2. NEVIRAPINE. [Concomitant]
     Active Substance: NEVIRAPINE
     Dosage: STRENGTH 400 OD

REACTIONS (1)
  - SARS-CoV-2 antibody test positive [Unknown]

NARRATIVE: CASE EVENT DATE: 202006
